FAERS Safety Report 15509712 (Version 2)
Quarter: 2018Q4

REPORT INFORMATION
  Report Type: Report from Study
  Country: US (occurrence: US)
  Receive Date: 20181016
  Receipt Date: 20181023
  Transmission Date: 20190205
  Serious: Yes (Hospitalization, Other)
  Sender: FDA-Public Use
  Company Number: US-SA-2018SA142080

PATIENT
  Age: 58 Year
  Sex: Male

DRUGS (2)
  1. ALIROCUMAB [Suspect]
     Active Substance: ALIROCUMAB
     Dosage: 75 UNK
     Route: 058
     Dates: start: 20181006
  2. ALIROCUMAB [Suspect]
     Active Substance: ALIROCUMAB
     Indication: BLOOD CHOLESTEROL
     Dosage: 75 MG
     Route: 058
     Dates: start: 20180503, end: 201809

REACTIONS (12)
  - Pollakiuria [Unknown]
  - Dyspnoea [Unknown]
  - Cardiac disorder [Unknown]
  - Rhinorrhoea [Unknown]
  - Decreased appetite [Unknown]
  - Injection site bruising [Unknown]
  - Respiratory tract infection [Unknown]
  - Weight decreased [Unknown]
  - Muscular weakness [Unknown]
  - Erythema [Unknown]
  - Chest pain [Unknown]
  - Fatigue [Unknown]

NARRATIVE: CASE EVENT DATE: 2018
